FAERS Safety Report 8740858 (Version 3)
Quarter: 2013Q1

REPORT INFORMATION
  Report Type: Report from Study
  Country: JP (occurrence: JP)
  Receive Date: 20120823
  Receipt Date: 20130325
  Transmission Date: 20140127
  Serious: Yes (Hospitalization, Other)
  Sender: FDA-Public Use
  Company Number: JP-MERCK-2012SP024168

PATIENT
  Age: 61 Year
  Sex: Male
  Weight: 64 kg

DRUGS (20)
  1. PEGINTERFERON ALFA-2B [Suspect]
     Indication: CHRONIC HEPATITIS C
     Dosage: 1.56 MICROGRAM PER KILOGRAM, QW
     Route: 058
     Dates: start: 20120111, end: 20120224
  2. PEGINTERFERON ALFA-2B [Suspect]
     Dosage: 1.25 MICROGRAM PER KILOGRAM, QW
     Route: 058
     Dates: start: 20120203
  3. PEGINTERFERON ALFA-2B [Suspect]
     Dosage: 1.3 MICROGRAM PER KILOGRAM, QW
     Route: 058
     Dates: start: 20120111
  4. PEGINTERFERON ALFA-2B [Suspect]
     Dosage: UNK, QW
     Route: 058
     Dates: end: 20120125
  5. PEGINTERFERON ALFA-2B [Suspect]
     Dosage: 1.06 MICROGRAM PER KILOGRAM, QW
     Route: 058
     Dates: start: 20120126, end: 20120531
  6. REBETOL [Suspect]
     Indication: CHRONIC HEPATITIS C
     Dosage: 800 MG, QD
     Route: 048
     Dates: start: 20120111, end: 20120223
  7. REBETOL [Suspect]
     Dosage: 600 MG, QD
     Route: 048
     Dates: start: 20120224, end: 20120301
  8. REBETOL [Suspect]
     Dosage: 400 MG, QD
     Route: 048
     Dates: start: 20120302, end: 20120517
  9. REBETOL [Suspect]
     Dosage: 600 MG, QD
     Route: 048
     Dates: start: 20120518, end: 20120531
  10. TELAVIC [Suspect]
     Indication: CHRONIC HEPATITIS C
     Dosage: 2250 MG, QD
     Route: 048
     Dates: start: 20120111, end: 20120329
  11. TELAVIC [Suspect]
     Dosage: 750 MG, QD
     Route: 048
     Dates: start: 20120330
  12. TELAVIC [Suspect]
     Dosage: 1000 MG, QD
     Route: 048
     Dates: start: 20120330, end: 20120406
  13. URSO [Concomitant]
     Indication: CHRONIC HEPATITIS C
     Dosage: 6 DF, QD
     Route: 048
  14. LORFENAMIN [Concomitant]
     Indication: PROPHYLAXIS
     Dosage: AS NEEDED
     Route: 048
     Dates: start: 20120111, end: 20120124
  15. MUCOSTA [Concomitant]
     Indication: PROPHYLAXIS
     Dosage: 300 MG, QD
     Route: 048
     Dates: start: 20120118
  16. LYRICA [Concomitant]
     Dosage: 75 MG, QD
     Route: 048
     Dates: start: 20120121
  17. EPADEL [Concomitant]
     Indication: PROPHYLAXIS
     Dosage: 2 DF, QD
     Route: 048
     Dates: start: 20120217
  18. LENDORMIN [Concomitant]
     Indication: PROPHYLAXIS
     Dosage: 0.25 MG, QD
     Route: 048
     Dates: start: 20120217
  19. HANGE-SHASHIN-TO [Concomitant]
     Indication: PROPHYLAXIS
     Dosage: 7.5 G, QD
     Route: 048
     Dates: start: 20120217
  20. L CARTIN [Concomitant]
     Indication: PROPHYLAXIS
     Dosage: 1800 MG, QD
     Route: 048
     Dates: start: 20120518

REACTIONS (3)
  - Interstitial lung disease [Recovering/Resolving]
  - Interstitial lung disease [Recovering/Resolving]
  - Haemoglobin decreased [Not Recovered/Not Resolved]
